FAERS Safety Report 10184974 (Version 1)
Quarter: 2014Q2

REPORT INFORMATION
  Report Type: Spontaneous
  Country: US (occurrence: None)
  Receive Date: 20140520
  Receipt Date: 20140520
  Transmission Date: 20141212
  Serious: Yes (Hospitalization)
  Sender: FDA-Public Use
  Company Number: None

PATIENT
  Age: 68 Year
  Sex: Female

DRUGS (8)
  1. CEFEPIME [Suspect]
     Indication: ANTIBIOTIC PROPHYLAXIS
     Route: 042
     Dates: start: 20120819, end: 20120820
  2. CEFEPIME [Suspect]
     Indication: POSTOPERATIVE CARE
     Route: 042
     Dates: start: 20120819, end: 20120820
  3. ARIPIPRAZOLE [Concomitant]
  4. CARVEDILOL [Concomitant]
  5. FLUOXETINE [Concomitant]
  6. EPLERENONE [Concomitant]
  7. OXYCODONE [Concomitant]
  8. ROSUVASTATIN [Concomitant]

REACTIONS (1)
  - Pyrexia [None]
